FAERS Safety Report 6713575-4 (Version None)
Quarter: 2010Q2

REPORT INFORMATION
  Report Type: 
  Country: None (occurrence: None)
  Receive Date: 20100503
  Receipt Date: 20100422
  Transmission Date: 20101027
  Serious: Yes (Hospitalization)
  Sender: FDA-Public Use
  Company Number: 008597

PATIENT
  Age: 72 Year
  Sex: Male
  Weight: 65 kg

DRUGS (6)
  1. PLETAL [Suspect]
     Indication: ARTERIOSCLEROSIS OBLITERANS
     Dosage: 50 MG, BID ORAL; 100 MG, BID ORAL
     Route: 048
     Dates: start: 20100107, end: 20100113
  2. PLETAL [Suspect]
     Indication: ARTERIOSCLEROSIS OBLITERANS
     Dosage: 50 MG, BID ORAL; 100 MG, BID ORAL
     Route: 048
     Dates: start: 20100114, end: 20100119
  3. PLETAL [Suspect]
     Indication: ARTERIOSCLEROSIS OBLITERANS
     Dosage: 50 MG, BID ORAL; 100 MG, BID ORAL
     Route: 048
     Dates: start: 20100304
  4. AMARYL [Concomitant]
  5. KALIMATE (CALCIUM POLYSTYRENE SULFONATE) [Concomitant]
  6. MERISLON (BETAHISTINE HYDROCHLORIDE) TABLET [Concomitant]

REACTIONS (3)
  - ATRIAL FLUTTER [None]
  - LOSS OF CONSCIOUSNESS [None]
  - SICK SINUS SYNDROME [None]
